FAERS Safety Report 4427769-4 (Version None)
Quarter: 2004Q3

REPORT INFORMATION
  Report Type: 
  Country: None (occurrence: None)
  Receive Date: 20040812
  Receipt Date: 20040801
  Transmission Date: 20050211
  Serious: Yes (Hospitalization)
  Sender: FDA-Public Use
  Company Number: US-JNJFOC-20040800735

PATIENT
  Sex: Female

DRUGS (1)
  1. TYLENOL [Suspect]

REACTIONS (2)
  - HEPATIC FAILURE [None]
  - OVERDOSE [None]
